FAERS Safety Report 9667320 (Version 1)
Quarter: 2013Q4

REPORT INFORMATION
  Report Type: Spontaneous
  Country: US (occurrence: US)
  Receive Date: 20131104
  Receipt Date: 20131104
  Transmission Date: 20140711
  Serious: No
  Sender: FDA-Public Use
  Company Number: US-BIOGENIDEC-2013BI090808

PATIENT
  Age: 66 Year
  Sex: Female

DRUGS (5)
  1. TECFIDERA [Suspect]
     Indication: MULTIPLE SCLEROSIS
     Route: 048
     Dates: start: 20130715
  2. VITAMIN B12 [Concomitant]
  3. ALENDRONATE SODIUM [Concomitant]
  4. LOSARTAN [Concomitant]
  5. POTASSIUM [Concomitant]

REACTIONS (1)
  - Abdominal pain [Unknown]
